FAERS Safety Report 18925122 (Version 1)
Quarter: 2021Q1

REPORT INFORMATION
  Report Type: Report from Study
  Country: None (occurrence: US)
  Receive Date: 20210223
  Receipt Date: 20210223
  Transmission Date: 20210420
  Serious: Yes (Hospitalization, Other)
  Sender: FDA-Public Use
  Company Number: US-ABBVIE-20K-163-3606001-00

PATIENT
  Sex: Female
  Weight: 54.48 kg

DRUGS (4)
  1. HUMIRA [Suspect]
     Active Substance: ADALIMUMAB
     Route: 058
     Dates: start: 20200928, end: 20200928
  2. HUMIRA [Suspect]
     Active Substance: ADALIMUMAB
     Indication: CROHN^S DISEASE
     Dosage: DAY 1
     Route: 058
     Dates: start: 20200914, end: 20200914
  3. HUMIRA [Suspect]
     Active Substance: ADALIMUMAB
     Dosage: DAY 15
     Route: 058
     Dates: start: 20200928, end: 20200928
  4. HUMIRA [Suspect]
     Active Substance: ADALIMUMAB
     Indication: CROHN^S DISEASE
     Route: 058
     Dates: start: 2020, end: 2020

REACTIONS (18)
  - Chills [Recovered/Resolved]
  - Haematochezia [Recovered/Resolved]
  - Constipation [Not Recovered/Not Resolved]
  - Haematochezia [Unknown]
  - Intestinal resection [Unknown]
  - Malaise [Not Recovered/Not Resolved]
  - Urinary tract infection [Unknown]
  - Fistula [Unknown]
  - Chills [Recovered/Resolved]
  - Mucous stools [Not Recovered/Not Resolved]
  - Abdominal pain [Unknown]
  - Appendicectomy [Unknown]
  - Abdominal abscess [Recovered/Resolved]
  - Haematochezia [Unknown]
  - Bladder operation [Unknown]
  - Chills [Unknown]
  - Abdominal abscess [Unknown]
  - Weight decreased [Not Recovered/Not Resolved]

NARRATIVE: CASE EVENT DATE: 2020
